FAERS Safety Report 7669952-0 (Version None)
Quarter: 2011Q3

REPORT INFORMATION
  Report Type: 
  Country: None (occurrence: None)
  Receive Date: 20110808
  Receipt Date: 20110729
  Transmission Date: 20111222
  Serious: Yes (Death, Hospitalization, Other)
  Sender: FDA-Public Use
  Company Number: IL-ACTELION-A-CH2011-45476

PATIENT
  Age: 1 Year
  Sex: Female

DRUGS (8)
  1. TRACLEER [Suspect]
     Indication: PULMONARY ARTERIAL HYPERTENSION
     Dosage: UNK , UNK
     Route: 048
     Dates: start: 20101101, end: 20110715
  2. REVATIO [Concomitant]
  3. VANCOMYCIN [Concomitant]
  4. EPINEPHRINE [Concomitant]
  5. DIURETICS [Concomitant]
     Dosage: UNK
  6. CORTICOSTEROIDS [Concomitant]
  7. FLOLAN [Concomitant]
  8. FUROSEMIDE [Concomitant]

REACTIONS (4)
  - INFECTION [None]
  - RESPIRATORY TRACT INFECTION [None]
  - CONDITION AGGRAVATED [None]
  - PULMONARY ARTERIAL HYPERTENSION [None]
